FAERS Safety Report 7023652-9 (Version None)
Quarter: 2010Q3

REPORT INFORMATION
  Report Type: 
  Country: None (occurrence: None)
  Receive Date: 20100929
  Receipt Date: 20100929
  Transmission Date: 20110219
  Serious: Yes (Hospitalization)
  Sender: FDA-Public Use
  Company Number: None

PATIENT
  Sex: Female
  Weight: 13.8 kg

DRUGS (1)
  1. CYTARABINE [Suspect]
     Dosage: 4200 MG
     Dates: end: 20100506

REACTIONS (3)
  - FEBRILE NEUTROPENIA [None]
  - KLEBSIELLA TEST POSITIVE [None]
  - SEPSIS [None]
